FAERS Safety Report 20066718 (Version 1)
Quarter: 2021Q4

REPORT INFORMATION
  Report Type: Spontaneous
  Country: None (occurrence: US)
  Receive Date: 20211115
  Receipt Date: 20211115
  Transmission Date: 20220303
  Serious: No
  Sender: FDA-Public Use
  Company Number: US-AKCEA THERAPEUTICS, INC.-2021IS001581

PATIENT
  Age: 48 Year
  Sex: Female

DRUGS (4)
  1. TEGSEDI [Suspect]
     Active Substance: INOTERSEN SODIUM
     Indication: Hereditary neuropathic amyloidosis
     Route: 058
     Dates: start: 20200127
  2. DEVICE [Suspect]
     Active Substance: DEVICE
  3. TEGSEDI [Suspect]
     Active Substance: INOTERSEN SODIUM
     Dates: start: 20210721
  4. PREDNISONE [Concomitant]
     Active Substance: PREDNISONE
     Dates: start: 202107

REACTIONS (6)
  - Injection site erythema [Unknown]
  - Injection site swelling [Unknown]
  - Injection site discomfort [Unknown]
  - Injection site warmth [Unknown]
  - Injection site pain [Unknown]
  - Injection site pruritus [Unknown]
